FAERS Safety Report 9947601 (Version 1)
Quarter: 2014Q1

REPORT INFORMATION
  Report Type: Report from Study
  Country: US (occurrence: US)
  Receive Date: 20140303
  Receipt Date: 20140303
  Transmission Date: 20141002
  Serious: No
  Sender: FDA-Public Use
  Company Number: US-ABBVIE-13P-163-1057440-00

PATIENT
  Age: 47 Year
  Sex: Male

DRUGS (3)
  1. HUMIRA [Suspect]
     Indication: PSORIASIS
     Dosage: 80 MG LOADING DOSE TODAY
     Dates: start: 20130228, end: 20130228
  2. HUMIRA [Suspect]
  3. AMBIEN [Concomitant]
     Indication: INSOMNIA

REACTIONS (2)
  - Injection site haemorrhage [Recovering/Resolving]
  - Injection site haemorrhage [Recovering/Resolving]
